FAERS Safety Report 8353672-3 (Version None)
Quarter: 2012Q2

REPORT INFORMATION
  Report Type: 
  Country: None (occurrence: None)
  Receive Date: 20120511
  Receipt Date: 20120502
  Transmission Date: 20120825
  Serious: Yes (Disabling)
  Sender: FDA-Public Use
  Company Number: FR-ASTRAZENECA-2012SE28802

PATIENT
  Age: 873 Month
  Sex: Male

DRUGS (6)
  1. CASODEX [Suspect]
     Indication: PROSTATE CANCER
     Route: 048
     Dates: start: 20110301
  2. ATORVASTATIN [Concomitant]
     Route: 048
  3. PERINDOPRIL ERBUMINE [Concomitant]
     Route: 048
  4. AMLODIPINE BESYLATE [Concomitant]
     Route: 048
  5. ZOLADEX [Concomitant]
     Route: 058
  6. MODURETIC 5-50 [Concomitant]
     Route: 048

REACTIONS (1)
  - HYPERTROPHIC CARDIOMYOPATHY [None]
